FAERS Safety Report 7781821-4 (Version None)
Quarter: 2011Q3

REPORT INFORMATION
  Report Type: 
  Country: None (occurrence: None)
  Receive Date: 20110927
  Receipt Date: 20110923
  Transmission Date: 20111222
  Serious: Yes (Other)
  Sender: FDA-Public Use
  Company Number: DE-GLAXOSMITHKLINE-D0072828A

PATIENT
  Sex: Male

DRUGS (1)
  1. MALARONE [Suspect]
     Route: 048

REACTIONS (3)
  - COLITIS [None]
  - ABDOMINAL PAIN [None]
  - HAEMATOCHEZIA [None]
